FAERS Safety Report 5078426-5 (Version None)
Quarter: 2006Q3

REPORT INFORMATION
  Report Type: 
  Country: None (occurrence: None)
  Receive Date: 20060811
  Receipt Date: 20060206
  Transmission Date: 20061208
  Serious: Yes (Life-Threatening, Hospitalization, Disabling, Other)
  Sender: FDA-Public Use
  Company Number: 2006UW02015

PATIENT
  Age: 17187 Day
  Sex: Male

DRUGS (18)
  1. CRESTOR [Suspect]
     Route: 048
     Dates: start: 20040202, end: 20040620
  2. TOPROL-XL [Concomitant]
     Route: 048
  3. TRICOR [Concomitant]
  4. ZETIA [Concomitant]
  5. DIOVAN HCT [Concomitant]
     Route: 048
  6. WELLBUTRIN [Concomitant]
     Route: 048
  7. CELEBREX [Concomitant]
     Dosage: BID PRN
     Route: 048
  8. PARAFON FORTE DSC [Concomitant]
     Route: 048
  9. ZOCOR [Concomitant]
  10. MOBIC [Concomitant]
     Route: 048
  11. ULTRAM [Concomitant]
     Route: 048
  12. DARVOCET [Concomitant]
     Dosage: 100-650 MG PRN Q6HR
     Route: 048
  13. SEROQUEL [Concomitant]
     Dosage: 1 TAB IN AM/3 TABS IN PM
     Route: 048
  14. KLONOPIN [Concomitant]
     Route: 048
  15. EFFEXOR XR [Concomitant]
     Route: 048
  16. DEPAKOTE [Concomitant]
     Dosage: 1 TAB QAM/2 TAB QPM
     Route: 048
  17. AUGMENTIN [Concomitant]
     Dosage: 875-125 MG
     Route: 048
  18. ALBUTEROL [Concomitant]
     Dosage: 2 PUFFS Q4-6 PRN
     Route: 048

REACTIONS (15)
  - ASTHENIA [None]
  - CATHETER RELATED COMPLICATION [None]
  - CONFUSIONAL STATE [None]
  - DYSURIA [None]
  - HYPERKALAEMIA [None]
  - HYPERSOMNIA [None]
  - HYPERTENSION [None]
  - IATROGENIC INJURY [None]
  - MYOCARDIAL INFARCTION [None]
  - NERVE COMPRESSION [None]
  - OVERDOSE [None]
  - PNEUMONIA [None]
  - PULMONARY OEDEMA [None]
  - RENAL FAILURE ACUTE [None]
  - RHABDOMYOLYSIS [None]
